FAERS Safety Report 7119954-8 (Version None)
Quarter: 2010Q4

REPORT INFORMATION
  Report Type: 
  Country: None (occurrence: None)
  Receive Date: 20101123
  Receipt Date: 20101122
  Transmission Date: 20110411
  Serious: Yes (Hospitalization)
  Sender: FDA-Public Use
  Company Number: CHPA2010JP16716

PATIENT
  Age: 38 Year
  Sex: Female

DRUGS (3)
  1. SLOW FE BROWN (NCH) [Suspect]
     Indication: IRON DEFICIENCY ANAEMIA
     Dosage: 150 MG, QD
     Route: 048
     Dates: start: 20100921, end: 20101020
  2. PREDONINE [Suspect]
     Dosage: 45 MG, QD
     Dates: start: 20070615
  3. GABALON [Suspect]
     Dosage: 30 MG, QD
     Dates: start: 20070615

REACTIONS (5)
  - DECREASED APPETITE [None]
  - HEADACHE [None]
  - MALAISE [None]
  - MEDICATION ERROR [None]
  - NASOPHARYNGITIS [None]
